FAERS Safety Report 7972051-1 (Version None)
Quarter: 2011Q4

REPORT INFORMATION
  Report Type: 
  Country: None (occurrence: None)
  Receive Date: 20111212
  Receipt Date: 20111130
  Transmission Date: 20120403
  Serious: Yes (Hospitalization)
  Sender: FDA-Public Use
  Company Number: US-ELI_LILLY_AND_COMPANY-US201112000520

PATIENT
  Sex: Female

DRUGS (3)
  1. LIPITOR [Concomitant]
  2. FORTEO [Suspect]
     Indication: OSTEOPOROSIS
     Dosage: 20 UG, QD
     Route: 065
  3. ACTONEL [Concomitant]

REACTIONS (3)
  - HYPOAESTHESIA [None]
  - SPINAL DISORDER [None]
  - CYST [None]
